FAERS Safety Report 13390346 (Version 1)
Quarter: 2017Q1

REPORT INFORMATION
  Report Type: Spontaneous
  Country: US (occurrence: US)
  Receive Date: 20170331
  Receipt Date: 20170331
  Transmission Date: 20170429
  Serious: Yes (Life-Threatening, Hospitalization, Other)
  Sender: FDA-Public Use
  Company Number: US-TORRENT-00002631

PATIENT
  Age: 15 Year
  Sex: Female

DRUGS (3)
  1. SERTRALINE [Suspect]
     Active Substance: SERTRALINE HYDROCHLORIDE
  2. LORATADINE. [Concomitant]
     Active Substance: LORATADINE
  3. AMPHETAMINE/DEXTROAMPHETAMINE [Suspect]
     Active Substance: AMPHETAMINE\DEXTROAMPHETAMINE

REACTIONS (7)
  - Intentional overdose [Recovered/Resolved]
  - Sinus tachycardia [None]
  - Electrocardiogram QT prolonged [Recovered/Resolved]
  - Heart sounds abnormal [None]
  - Stress cardiomyopathy [Recovered/Resolved]
  - Suicide attempt [None]
  - Cardiac murmur [None]
